FAERS Safety Report 8307125-9 (Version None)
Quarter: 2012Q2

REPORT INFORMATION
  Report Type: 
  Country: None (occurrence: None)
  Receive Date: 20120424
  Receipt Date: 20120419
  Transmission Date: 20120825
  Serious: Yes (Hospitalization)
  Sender: FDA-Public Use
  Company Number: HU-PFIZER INC-2012098704

PATIENT
  Age: 51 Year
  Sex: Female
  Weight: 68 kg

DRUGS (4)
  1. ATORVASTATIN [Concomitant]
     Dosage: UNK
  2. INSULIN [Concomitant]
     Dosage: UNK
  3. FOSINOPRIL SODIUM/HYDROCHLOROTHIAZIDE [Concomitant]
     Dosage: UNK
  4. SUTENT [Suspect]
     Indication: NEUROENDOCRINE TUMOUR
     Dosage: 37.5 MG, 1X/DAY
     Dates: start: 20120126, end: 20120418

REACTIONS (1)
  - HAEMOLYTIC URAEMIC SYNDROME [None]
